FAERS Safety Report 5317775-X (Version None)
Quarter: 2007Q2

REPORT INFORMATION
  Report Type: 
  Country: None (occurrence: None)
  Receive Date: 20070502
  Receipt Date: 20070502
  Transmission Date: 20071010
  Serious: No
  Sender: FDA-Public Use
  Company Number: None

PATIENT
  Age: 61 Year
  Sex: Female

DRUGS (1)
  1. RIFAPENTINE [Suspect]
     Indication: TUBERCULOSIS
     Dosage: 600MG
     Dates: start: 20061020, end: 20061023

REACTIONS (10)
  - CONVULSION [None]
  - EPISTAXIS [None]
  - HAEMATOCHEZIA [None]
  - HAEMATURIA [None]
  - NAUSEA [None]
  - PAIN IN EXTREMITY [None]
  - PLATELET COUNT DECREASED [None]
  - RASH [None]
  - TREMOR [None]
  - VOMITING [None]
